FAERS Safety Report 12954869 (Version 1)
Quarter: 2016Q4

REPORT INFORMATION
  Report Type: Spontaneous
  Country: GB (occurrence: GB)
  Receive Date: 20161118
  Receipt Date: 20161118
  Transmission Date: 20170207
  Serious: Yes (Other)
  Sender: FDA-Public Use
  Company Number: GB-TEVA-712722ACC

PATIENT
  Age: 58 Year
  Sex: Male

DRUGS (1)
  1. CICLOSPORIN [Suspect]
     Active Substance: CYCLOSPORINE
     Indication: PSORIASIS
     Dosage: 200 MILLIGRAM DAILY; 100 MG, BID
     Route: 065
     Dates: start: 2012

REACTIONS (4)
  - Hair colour changes [Unknown]
  - Psoriasis [Unknown]
  - Alopecia [Unknown]
  - Arthralgia [Unknown]
